FAERS Safety Report 9786058 (Version 2)
Quarter: 2014Q1

REPORT INFORMATION
  Report Type: Report from Study
  Country: US (occurrence: US)
  Receive Date: 20131227
  Receipt Date: 20140114
  Transmission Date: 20141002
  Serious: Yes (Hospitalization, Disabling)
  Sender: FDA-Public Use
  Company Number: US-AMGEN-USACT2013090287

PATIENT
  Age: 59 Year
  Sex: Male
  Weight: 55.91 kg

DRUGS (9)
  1. DENOSUMAB [Suspect]
     Indication: OSTEOPOROSIS POSTMENOPAUSAL
     Dosage: 60 MG, UNK
     Route: 058
     Dates: start: 20120619
  2. PREDNISONE [Concomitant]
     Dosage: 10 MG, UNK
     Route: 048
     Dates: start: 19861201
  3. SINEMET [Concomitant]
     Dosage: 100 MG, UNK
     Route: 048
     Dates: start: 20110819
  4. CITALOPRAM [Concomitant]
     Dosage: UNK
     Route: 048
     Dates: start: 20110819
  5. CLONAZEPAM [Concomitant]
     Dosage: 1 MG, UNK
     Route: 048
     Dates: start: 20110819
  6. OMEPRAZOLE [Concomitant]
     Dosage: 20 MG, UNK
     Route: 048
     Dates: start: 20110819
  7. SYMBICORT [Concomitant]
     Dosage: 2 UNK, UNK
     Route: 055
     Dates: start: 20110819
  8. CALCIUM [Concomitant]
     Dosage: 1200 MG, UNK
     Route: 048
     Dates: start: 20120105
  9. VITAMIN D                          /00107901/ [Concomitant]
     Dosage: 1000 IU, UNK
     Route: 048
     Dates: start: 20120105

REACTIONS (1)
  - Spinal decompression [Recovered/Resolved]
